FAERS Safety Report 8763760 (Version 3)
Quarter: 2013Q1

REPORT INFORMATION
  Report Type: Spontaneous
  Country: GB (occurrence: GB)
  Receive Date: 20120831
  Receipt Date: 20130118
  Transmission Date: 20140127
  Serious: Yes (Other)
  Sender: FDA-Public Use
  Company Number: PHFR2012GB004617

PATIENT
  Age: 61 Year
  Sex: Male

DRUGS (2)
  1. CLOZARIL [Suspect]
     Indication: SCHIZOPHRENIA
     Dosage: UNK
     Route: 048
     Dates: start: 20120724
  2. CLOZARIL [Suspect]
     Dosage: 100 MG DAILY
     Route: 048
     Dates: start: 20120818, end: 20120829

REACTIONS (2)
  - Differential white blood cell count abnormal [Unknown]
  - Eosinophilia [Recovered/Resolved]
